FAERS Safety Report 8204908-0 (Version None)
Quarter: 2012Q1

REPORT INFORMATION
  Report Type: 
  Country: None (occurrence: None)
  Receive Date: 20120313
  Receipt Date: 20120307
  Transmission Date: 20120608
  Serious: No
  Sender: FDA-Public Use
  Company Number: US-BAYER-2012-023944

PATIENT
  Age: 41 Year
  Sex: Male
  Weight: 83.9 kg

DRUGS (1)
  1. ALEVE (CAPLET) [Suspect]
     Dosage: 4 U, ONCE
     Route: 048
     Dates: start: 20120307

REACTIONS (1)
  - NO ADVERSE EVENT [None]
